FAERS Safety Report 10408962 (Version 2)
Quarter: 2014Q3

REPORT INFORMATION
  Report Type: Spontaneous
  Country: TR (occurrence: TR)
  Receive Date: 20140826
  Receipt Date: 20140910
  Transmission Date: 20150326
  Serious: Yes (Hospitalization)
  Sender: FDA-Public Use
  Company Number: TR-NOVOPROD-420006

PATIENT
  Sex: Male
  Weight: 3 kg

DRUGS (4)
  1. FISH OIL [Concomitant]
     Active Substance: FISH OIL
     Dosage: 1 X 1
     Route: 064
     Dates: start: 201403, end: 20140604
  2. ACTRAPID [Suspect]
     Active Substance: INSULIN HUMAN
     Indication: GESTATIONAL DIABETES
     Dosage: 10 U, QD
     Route: 064
     Dates: start: 20140403, end: 20140604
  3. GYNO-FERRO SANOL [Concomitant]
     Indication: MINERAL SUPPLEMENTATION
     Dosage: 1 X1
     Route: 064
     Dates: start: 201312, end: 20140604
  4. ALFAMET [Concomitant]
     Active Substance: METHYLDOPA
     Indication: HYPERTENSION
     Dosage: 1 X 1
     Route: 064
     Dates: start: 201401, end: 20140604

REACTIONS (4)
  - Neonatal aspiration [Recovered/Resolved]
  - Jaundice neonatal [Recovered/Resolved]
  - Neonatal infection [Recovered/Resolved]
  - Foetal exposure during pregnancy [Recovered/Resolved]

NARRATIVE: CASE EVENT DATE: 20140403
